FAERS Safety Report 8005929-3 (Version None)
Quarter: 2011Q4

REPORT INFORMATION
  Report Type: 
  Country: None (occurrence: None)
  Receive Date: 20111223
  Receipt Date: 20111212
  Transmission Date: 20120403
  Serious: Yes (Other)
  Sender: FDA-Public Use
  Company Number: US-ROCHE-793950

PATIENT
  Sex: Male
  Weight: 90.8 kg

DRUGS (3)
  1. ACCUTANE [Suspect]
     Route: 065
  2. ACCUTANE [Suspect]
     Route: 065
  3. ACCUTANE [Suspect]
     Indication: PRODUCT USED FOR UNKNOWN INDICATION
     Route: 065

REACTIONS (6)
  - CROHN'S DISEASE [None]
  - COLITIS ULCERATIVE [None]
  - SUICIDAL IDEATION [None]
  - DEPRESSION [None]
  - INFLAMMATORY BOWEL DISEASE [None]
  - ANXIETY [None]
